FAERS Safety Report 7623622-3 (Version None)
Quarter: 2011Q3

REPORT INFORMATION
  Report Type: 
  Country: None (occurrence: None)
  Receive Date: 20110720
  Receipt Date: 20110716
  Transmission Date: 20111222
  Serious: No
  Sender: FDA-Public Use
  Company Number: US-TEVA-291160USA

PATIENT
  Age: 25 Year
  Sex: Female
  Weight: 50.848 kg

DRUGS (1)
  1. PLAN B ONE-STEP [Suspect]
     Indication: POST COITAL CONTRACEPTION
     Dosage: 1.5 MILLIGRAM;
     Route: 048
     Dates: start: 20110615, end: 20110615

REACTIONS (5)
  - BURNING SENSATION [None]
  - MENSTRUATION IRREGULAR [None]
  - ABDOMINAL DISTENSION [None]
  - POLLAKIURIA [None]
  - BODY DYSMORPHIC DISORDER [None]
